FAERS Safety Report 21731985 (Version 1)
Quarter: 2022Q4

REPORT INFORMATION
  Report Type: Report from Study
  Country: US (occurrence: US)
  Receive Date: 20221215
  Receipt Date: 20221215
  Transmission Date: 20230113
  Serious: No
  Sender: FDA-Public Use
  Company Number: US-ABBVIE-22K-163-4465110-00

PATIENT
  Sex: Male

DRUGS (1)
  1. HUMIRA [Suspect]
     Active Substance: ADALIMUMAB
     Indication: Rheumatoid arthritis
     Dosage: CITRATE FREE, STARTED SINCE OVER 20 YEARS
     Route: 058

REACTIONS (3)
  - Trigger finger [Not Recovered/Not Resolved]
  - Nerve compression [Not Recovered/Not Resolved]
  - Back pain [Not Recovered/Not Resolved]
